FAERS Safety Report 11995443 (Version 2)
Quarter: 2016Q1

REPORT INFORMATION
  Report Type: Spontaneous
  Country: DE (occurrence: DE)
  Receive Date: 20160203
  Receipt Date: 20160212
  Transmission Date: 20160526
  Serious: Yes (Life-Threatening, Hospitalization)
  Sender: FDA-Public Use
  Company Number: US-ASTRAZENECA-2016SE10746

PATIENT
  Age: 1 Month
  Sex: Female
  Weight: 1.8 kg

DRUGS (6)
  1. SYNAGIS [Suspect]
     Active Substance: PALIVIZUMAB
     Indication: PREMATURE BABY
     Dosage: CONC. 100MG/ML, DOSE 0.35ML, EVERY FOUR WEEKS
     Route: 030
  2. DEKRISTOL [Concomitant]
     Active Substance: CHOLECALCIFEROL
     Indication: PRODUCT USED FOR UNKNOWN INDICATION
     Route: 048
  3. VITAMIN K [Concomitant]
     Active Substance: PHYTONADIONE
     Indication: PRODUCT USED FOR UNKNOWN INDICATION
     Route: 048
     Dates: start: 20151221, end: 20151221
  4. FERRO SANOL [Concomitant]
     Active Substance: FERROUS GLYCINE SULFATE
     Indication: PRODUCT USED FOR UNKNOWN INDICATION
     Dosage: CHANING DOSE
     Route: 048
  5. VITAMIN K [Concomitant]
     Active Substance: PHYTONADIONE
     Indication: PRODUCT USED FOR UNKNOWN INDICATION
     Route: 048
     Dates: start: 20151225, end: 20151225
  6. SYNAGIS [Suspect]
     Active Substance: PALIVIZUMAB
     Indication: ANTIVIRAL PROPHYLAXIS
     Dosage: CONC. 100MG/ML, DOSE 0.35ML, EVERY FOUR WEEKS
     Route: 030

REACTIONS (7)
  - Bradycardia [Unknown]
  - Feeding disorder [Recovered/Resolved]
  - Abdominal distension [Unknown]
  - Apnoea [Recovered/Resolved]
  - Acidosis [Unknown]
  - Infection [Unknown]
  - Neonatal hypoxia [Unknown]

NARRATIVE: CASE EVENT DATE: 201601
